FAERS Safety Report 9747658 (Version 2)
Quarter: 2014Q1

REPORT INFORMATION
  Report Type: Spontaneous
  Country: JP (occurrence: None)
  Receive Date: 20131206
  Receipt Date: 20140122
  Transmission Date: 20141002
  Serious: Yes (Hospitalization)
  Sender: FDA-Public Use
  Company Number: 2013P1021581

PATIENT
  Sex: Female
  Weight: 65 kg

DRUGS (4)
  1. LOSARTAN [Suspect]
     Indication: HYPERTENSION
     Dates: start: 200403
  2. FLUVOXAMINE [Concomitant]
  3. ROSUVASTATIN [Concomitant]
  4. TRICHLORMETHIAZIDE [Concomitant]

REACTIONS (5)
  - Dermatomyositis [None]
  - Liver injury [None]
  - Biopsy liver abnormal [None]
  - Hepatic fibrosis [None]
  - Hepatocellular injury [None]
